FAERS Safety Report 19159196 (Version 1)
Quarter: 2021Q2

REPORT INFORMATION
  Report Type: Report from Study
  Country: IT (occurrence: IT)
  Receive Date: 20210420
  Receipt Date: 20210420
  Transmission Date: 20210717
  Serious: Yes (Other)
  Sender: FDA-Public Use
  Company Number: IT-TEVA-2021-IT-1902705

PATIENT
  Age: 42 Year
  Weight: 56 kg

DRUGS (3)
  1. TOPOTECAN AHCL [Concomitant]
  2. AVASTIN [Concomitant]
     Active Substance: BEVACIZUMAB
  3. PACLITAXEL TEVA ITALIA [Suspect]
     Active Substance: PACLITAXEL
     Indication: OVARIAN CANCER
     Dosage: 280 MG
     Route: 041

REACTIONS (3)
  - Erythema [Recovering/Resolving]
  - Hypersensitivity [Recovering/Resolving]
  - Heat stroke [Recovering/Resolving]

NARRATIVE: CASE EVENT DATE: 20210331
